FAERS Safety Report 5797206-6 (Version None)
Quarter: 2008Q3

REPORT INFORMATION
  Report Type: 
  Country: None (occurrence: None)
  Receive Date: 20080701
  Receipt Date: 20080619
  Transmission Date: 20090109
  Serious: Yes (Hospitalization)
  Sender: FDA-Public Use
  Company Number: US-PFIZER INC-2007071449

PATIENT
  Sex: Male
  Weight: 83.9 kg

DRUGS (6)
  1. MARAVIROC [Suspect]
     Indication: HIV TEST POSITIVE
     Route: 048
     Dates: start: 20060327, end: 20080401
  2. LAMIVUDINE + ZIDOVUDINE [Concomitant]
     Indication: HIV TEST POSITIVE
     Dosage: TEXT:300/150MG
     Route: 048
     Dates: start: 20060327, end: 20070818
  3. ATAZANAVIR SULFATE [Concomitant]
     Indication: HIV TEST POSITIVE
     Route: 048
     Dates: start: 20060327, end: 20070818
  4. LORAZEPAM [Concomitant]
     Indication: ANXIETY
     Route: 048
  5. SPIRONOLACTONE [Concomitant]
     Indication: ASCITES
     Route: 048
  6. FUROSEMIDE [Concomitant]
     Indication: ASCITES
     Route: 048

REACTIONS (1)
  - HEPATIC FAILURE [None]
